FAERS Safety Report 9758570 (Version 1)
Quarter: 2013Q4

REPORT INFORMATION
  Report Type: Spontaneous
  Country: US (occurrence: None)
  Receive Date: 20131216
  Receipt Date: 20131216
  Transmission Date: 20140711
  Serious: Yes (Death)
  Sender: FDA-Public Use
  Company Number: 2013010114(0)

PATIENT
  Sex: 0

DRUGS (5)
  1. CARISOPRODOL [Suspect]
  2. TRAMADOL [Suspect]
  3. OXYCODONE [Suspect]
  4. HYDROCODONE (HYDROCODONE) [Suspect]
  5. ALPRAZOLAM [Suspect]

REACTIONS (1)
  - Accidental overdose [None]
